FAERS Safety Report 7541819-8 (Version None)
Quarter: 2011Q2

REPORT INFORMATION
  Report Type: 
  Country: None (occurrence: None)
  Receive Date: 20110613
  Receipt Date: 20110531
  Transmission Date: 20111010
  Serious: Yes (Hospitalization)
  Sender: FDA-Public Use
  Company Number: US-CELGENEUS-163-20785-11030279

PATIENT
  Sex: Male

DRUGS (6)
  1. DECADRON [Suspect]
     Indication: MULTIPLE MYELOMA
     Dosage: 4 MILLIGRAM
     Route: 048
  2. CYMBALTA [Concomitant]
     Dosage: 30 MILLIGRAM
     Route: 048
  3. BUPROPION HCL [Concomitant]
     Dosage: 300 MILLIGRAM
     Route: 048
  4. THALOMID [Suspect]
     Dosage: 100 MILLIGRAM
     Route: 048
     Dates: start: 20100701, end: 20110207
  5. THALOMID [Suspect]
     Indication: MULTIPLE MYELOMA
     Dosage: 50 MILLIGRAM
     Route: 048
     Dates: start: 20100604
  6. COUMADIN [Concomitant]
     Dosage: 5 MILLIGRAM
     Route: 048

REACTIONS (1)
  - PROSTATE CANCER [None]
